FAERS Safety Report 9135124 (Version 1)
Quarter: 2013Q1

REPORT INFORMATION
  Report Type: Spontaneous
  Country: US (occurrence: None)
  Receive Date: 20130301
  Receipt Date: 20130301
  Transmission Date: 20140127
  Serious: Yes (Hospitalization)
  Sender: FDA-Public Use
  Company Number: DL2013-0192

PATIENT
  Age: 33 Year
  Sex: Female

DRUGS (3)
  1. MIFEPRISTONE [Suspect]
     Indication: ABORTION INDUCED
     Route: 048
     Dates: start: 20130213
  2. MISOPROSTOL [Suspect]
     Route: 002
     Dates: start: 20130214
  3. DOXYCYCLINE [Concomitant]

REACTIONS (5)
  - Dizziness [None]
  - Loss of consciousness [None]
  - Convulsion [None]
  - Haemorrhage [None]
  - Exposure during pregnancy [None]
